FAERS Safety Report 5884922-0 (Version None)
Quarter: 2008Q3

REPORT INFORMATION
  Report Type: 
  Country: None (occurrence: None)
  Receive Date: 20080916
  Receipt Date: 20080911
  Transmission Date: 20090109
  Serious: Yes (Hospitalization)
  Sender: FDA-Public Use
  Company Number: A0747069A

PATIENT
  Age: 50 Year
  Sex: Female

DRUGS (2)
  1. WELLBUTRIN XL [Suspect]
     Indication: DEPRESSION
     Dosage: 150MG PER DAY
     Route: 048
     Dates: start: 20080401, end: 20080831
  2. ZOCOR [Suspect]

REACTIONS (13)
  - CHEST PAIN [None]
  - COMMUNICATION DISORDER [None]
  - CONSTIPATION [None]
  - DRY MOUTH [None]
  - FEELING ABNORMAL [None]
  - MALAISE [None]
  - NERVOUSNESS [None]
  - PSYCHOTIC DISORDER [None]
  - STOMACH DISCOMFORT [None]
  - TONGUE DISCOLOURATION [None]
  - TREMOR [None]
  - VAGINAL DISCHARGE [None]
  - VAGINAL PAIN [None]
